FAERS Safety Report 6911901-4 (Version None)
Quarter: 2010Q3

REPORT INFORMATION
  Report Type: 
  Country: None (occurrence: None)
  Receive Date: 20100806
  Receipt Date: 20070828
  Transmission Date: 20110219
  Serious: No
  Sender: FDA-Public Use
  Company Number: US-PFIZER INC-2007071107

PATIENT
  Sex: Male

DRUGS (9)
  1. DETROL LA [Suspect]
     Indication: INCONTINENCE
     Dates: start: 20070801
  2. TRIAMTERENE [Concomitant]
  3. VITAMIN TAB [Concomitant]
  4. AZOPT [Concomitant]
  5. BETOPTIC [Concomitant]
  6. PILOCARPINE HYDROCHLORIDE [Concomitant]
  7. XALATAN [Concomitant]
  8. ALPHAGAN [Concomitant]
  9. TAMSULOSIN HCL [Concomitant]
     Indication: INCONTINENCE

REACTIONS (2)
  - MICTURITION URGENCY [None]
  - MUSCULAR DYSTROPHY [None]
